FAERS Safety Report 9843761 (Version 1)
Quarter: 2013Q4

REPORT INFORMATION
  Report Type: Spontaneous
  Country: US (occurrence: None)
  Receive Date: 20131223
  Receipt Date: 20131223
  Transmission Date: 20140711
  Serious: Yes (Other)
  Sender: FDA-Public Use
  Company Number: 1000050671

PATIENT
  Age: 46 Year
  Sex: Female

DRUGS (1)
  1. LINZESS [Suspect]
     Indication: IRRITABLE BOWEL SYNDROME
     Dates: start: 201302, end: 201304

REACTIONS (4)
  - Prescribed overdose [None]
  - Gastrointestinal pain [None]
  - Chest pain [None]
  - Constipation [None]
